FAERS Safety Report 6802214-X (Version None)
Quarter: 2010Q2

REPORT INFORMATION
  Report Type: 
  Country: None (occurrence: None)
  Receive Date: 20100629
  Receipt Date: 20090331
  Transmission Date: 20101027
  Serious: No
  Sender: FDA-Public Use
  Company Number: US-PFIZER INC-2006094990

PATIENT
  Sex: Female
  Weight: 86.2 kg

DRUGS (5)
  1. REVATIO [Suspect]
     Indication: PULMONARY HYPERTENSION
     Dosage: 20 MG, 3X/DAY
     Dates: start: 20060717
  2. PREDNISOLONE [Concomitant]
  3. KETOROLAC TROMETHAMINE [Concomitant]
  4. NIFEDIPINE [Concomitant]
     Indication: HYPERTENSION
  5. VICODIN [Concomitant]

REACTIONS (6)
  - ABDOMINAL PAIN [None]
  - FATIGUE [None]
  - GASTROOESOPHAGEAL REFLUX DISEASE [None]
  - INCORRECT DOSE ADMINISTERED [None]
  - THERAPEUTIC RESPONSE DECREASED [None]
  - VULVOVAGINAL DISCOMFORT [None]
